FAERS Safety Report 24257587 (Version 1)
Quarter: 2024Q3

REPORT INFORMATION
  Report Type: Spontaneous
  Country: CH (occurrence: CH)
  Receive Date: 20240828
  Receipt Date: 20240828
  Transmission Date: 20241016
  Serious: Yes (Death, Hospitalization, Other)
  Sender: AMGEN
  Company Number: CH-AMGEN-CHESP2024121893

PATIENT
  Age: 78 Year
  Sex: Female

DRUGS (2)
  1. ADALIMUMAB [Suspect]
     Active Substance: ADALIMUMAB
     Indication: Rheumatoid arthritis
     Dosage: UNK
     Route: 065
     Dates: start: 202109
  2. METHOTREXATE [Concomitant]
     Active Substance: METHOTREXATE
     Indication: Rheumatoid arthritis
     Dosage: UNK
     Route: 065

REACTIONS (10)
  - Acute kidney injury [Unknown]
  - Hypercalcaemia [Unknown]
  - Granulomatous liver disease [Unknown]
  - Bovine tuberculosis [Fatal]
  - Disseminated tuberculosis [Fatal]
  - Hepatitis [Unknown]
  - Adverse drug reaction [Unknown]
  - Drug intolerance [Unknown]
  - Splenic granuloma [Unknown]
  - Liver disorder [Unknown]

NARRATIVE: CASE EVENT DATE: 20230101
